FAERS Safety Report 9703576 (Version 1)
Quarter: 2013Q4

REPORT INFORMATION
  Report Type: Spontaneous
  Country: US (occurrence: US)
  Receive Date: 20131122
  Receipt Date: 20131122
  Transmission Date: 20140711
  Serious: No
  Sender: FDA-Public Use
  Company Number: US-PFIZER INC-2013333076

PATIENT
  Age: 42 Year
  Sex: Male
  Weight: 90.25 kg

DRUGS (2)
  1. NICOTINE [Suspect]
     Indication: SMOKING CESSATION THERAPY
     Dosage: 21 MG, UNK
     Dates: start: 20131019, end: 201311
  2. ADVAIR HFA [Concomitant]
     Indication: CHRONIC OBSTRUCTIVE PULMONARY DISEASE
     Dosage: SALMETEROL 50MG, FLUTICASONE PROPIONATE 500MG, 2X/DAY

REACTIONS (1)
  - Drug ineffective [Unknown]
